FAERS Safety Report 4531655-9 (Version None)
Quarter: 2004Q4

REPORT INFORMATION
  Report Type: 
  Country: None (occurrence: None)
  Receive Date: 20041220
  Receipt Date: 20041026
  Transmission Date: 20050328
  Serious: Yes (Death)
  Sender: FDA-Public Use
  Company Number: 200413328JP

PATIENT
  Age: 73 Year
  Sex: Female

DRUGS (1)
  1. RILUTEK [Suspect]
     Indication: AMYOTROPHIC LATERAL SCLEROSIS
     Route: 048
     Dates: start: 20001121, end: 20040616

REACTIONS (3)
  - AMYOTROPHIC LATERAL SCLEROSIS [None]
  - DISEASE PROGRESSION [None]
  - PNEUMONIA [None]
